FAERS Safety Report 24273635 (Version 1)
Quarter: 2024Q3

REPORT INFORMATION
  Report Type: Spontaneous
  Country: US (occurrence: US)
  Receive Date: 20240902
  Receipt Date: 20240902
  Transmission Date: 20241016
  Serious: No
  Sender: ASTELLAS
  Company Number: US-ASTELLAS-2023US037890

PATIENT
  Age: 82 Year
  Sex: Male

DRUGS (2)
  1. ENZALUTAMIDE [Suspect]
     Active Substance: ENZALUTAMIDE
     Indication: Product used for unknown indication
     Dosage: UNK UNK, UNKNOWN FREQ.
     Route: 065
     Dates: end: 2021
  2. LEUPROLIDE [Concomitant]
     Active Substance: LEUPROLIDE
     Indication: Prostate cancer
     Dosage: UNK UNK, UNKNOWN FREQ. (THERAPY DATES REPORTED AS 2017/2018 TO UNKNOWN)
     Route: 065

REACTIONS (1)
  - Prostatic specific antigen increased [Not Recovered/Not Resolved]
